FAERS Safety Report 8417197-9 (Version None)
Quarter: 2012Q2

REPORT INFORMATION
  Report Type: 
  Country: None (occurrence: None)
  Receive Date: 20120606
  Receipt Date: 20120530
  Transmission Date: 20120825
  Serious: Yes (Hospitalization)
  Sender: FDA-Public Use
  Company Number: US-ABBOTT-12P-163-0892650-00

PATIENT
  Sex: Female
  Weight: 62.198 kg

DRUGS (2)
  1. LUPRON DEPOT [Suspect]
     Indication: ENDOMETRIOSIS
     Dates: start: 20110919, end: 20111228
  2. NORETHINDRONE ACETATE [Concomitant]
     Indication: HORMONE REPLACEMENT THERAPY

REACTIONS (1)
  - CEREBROVASCULAR ACCIDENT [None]
